FAERS Safety Report 21409829 (Version 1)
Quarter: 2022Q4

REPORT INFORMATION
  Report Type: Other
  Country: DK (occurrence: DK)
  Receive Date: 20221005
  Receipt Date: 20221005
  Transmission Date: 20230112
  Serious: Yes (Hospitalization, Other)
  Sender: FDA-Public Use
  Company Number: DK-CELLTRION INC.-2022DK015845

PATIENT

DRUGS (3)
  1. INFLIXIMAB [Suspect]
     Active Substance: INFLIXIMAB
     Indication: Ankylosing spondylitis
     Dosage: DOSE UNKNOWN. ADMINISTERED EVERY 8 WEEKS. STRENGTH: 100 MG
     Dates: start: 20100208, end: 20190502
  2. INFLIXIMAB [Suspect]
     Active Substance: INFLIXIMAB
     Dosage: DOSE UNKNOWN. ADMINISTERED EVERY 8 WEEKS. STRENGTH: 100 MG
     Dates: start: 20100208, end: 20190502
  3. METHOTREXATE SODIUM [Suspect]
     Active Substance: METHOTREXATE SODIUM
     Indication: Ankylosing spondylitis
     Dosage: DOSAGE AND STRENGTH: UNKNOWN. START DATE: AT LEAST SINCE 2010. PAUSED FROM 07FEB2019
     Dates: end: 20190502

REACTIONS (21)
  - Anal sphincter atony [Unknown]
  - Micturition disorder [Recovered/Resolved]
  - Sensory disturbance [Unknown]
  - Urinary incontinence [Recovering/Resolving]
  - Loss of control of legs [Unknown]
  - Dyspnoea exertional [Unknown]
  - Decreased appetite [Unknown]
  - Neurogenic bowel [Recovered/Resolved]
  - Diffuse large B-cell lymphoma stage IV [Recovering/Resolving]
  - Defaecation disorder [Unknown]
  - Anal incontinence [Unknown]
  - Vomiting [Recovered/Resolved]
  - Headache [Recovered/Resolved]
  - Chest pain [Unknown]
  - Nausea [Unknown]
  - Muscular weakness [Unknown]
  - Hypoaesthesia [Recovering/Resolving]
  - Abdominal pain [Unknown]
  - Back pain [Unknown]
  - Pain [Recovered/Resolved]
  - Dizziness [Unknown]

NARRATIVE: CASE EVENT DATE: 20180101
